FAERS Safety Report 6118339-0 (Version None)
Quarter: 2009Q1

REPORT INFORMATION
  Report Type: 
  Country: None (occurrence: None)
  Receive Date: 20090314
  Receipt Date: 20090212
  Transmission Date: 20090719
  Serious: No
  Sender: FDA-Public Use
  Company Number: US-ABBOTT-09P-163-0557514-00

PATIENT
  Sex: Male
  Weight: 49.2 kg

DRUGS (6)
  1. HUMIRA [Suspect]
     Indication: CROHN'S DISEASE
     Route: 058
  2. HUMIRA [Suspect]
     Indication: COLITIS
  3. PREDNISONE [Concomitant]
     Indication: CROHN'S DISEASE
  4. PENTASA [Concomitant]
     Indication: CROHN'S DISEASE
  5. ENTOCORT EC [Concomitant]
     Indication: CROHN'S DISEASE
  6. FERREX FORTE [Concomitant]
     Indication: ANAEMIA

REACTIONS (1)
  - CROHN'S DISEASE [None]
